FAERS Safety Report 10239890 (Version 1)
Quarter: 2014Q2

REPORT INFORMATION
  Report Type: Spontaneous
  Country: DE (occurrence: DE)
  Receive Date: 20140616
  Receipt Date: 20140616
  Transmission Date: 20141212
  Serious: Yes (Other)
  Sender: FDA-Public Use
  Company Number: DE-B.I. PHARMACEUTICALS,INC./RIDGEFIELD-2014-BI-27148DE

PATIENT
  Sex: 0

DRUGS (1)
  1. PRADAXA [Suspect]
     Indication: ATRIAL FIBRILLATION
     Dosage: DOSE OF ONE APPLICATON: 150 (?) X 2
     Route: 065

REACTIONS (1)
  - Atrial thrombosis [Unknown]
